FAERS Safety Report 4557679-3 (Version None)
Quarter: 2005Q1

REPORT INFORMATION
  Report Type: 
  Country: None (occurrence: None)
  Receive Date: 20050103
  Receipt Date: 20041006
  Transmission Date: 20050727
  Serious: Yes (Other)
  Sender: FDA-Public Use
  Company Number: 2004UW17005

PATIENT
  Age: 40 Year
  Sex: Female
  Weight: 62.5964 kg

DRUGS (4)
  1. CRESTOR [Suspect]
     Indication: HYPERCHOLESTEROLAEMIA
     Dosage: 10 MG PO
     Route: 048
     Dates: end: 20040807
  2. ALLEGRA-D [Concomitant]
  3. MOTRIN [Concomitant]
  4. PREVACID [Concomitant]

REACTIONS (5)
  - ABDOMINAL PAIN [None]
  - INFLUENZA [None]
  - MYALGIA [None]
  - NAUSEA [None]
  - PYREXIA [None]
